FAERS Safety Report 18910455 (Version 1)
Quarter: 2021Q1

REPORT INFORMATION
  Report Type: Spontaneous
  Country: GR (occurrence: GR)
  Receive Date: 20210218
  Receipt Date: 20210218
  Transmission Date: 20210420
  Serious: Yes (Life-Threatening, Hospitalization, Other)
  Sender: FDA-Public Use
  Company Number: GR-B.I. PHARMACEUTICALS,INC./RIDGEFIELD-2021-BI-083481

PATIENT
  Age: 85 Year
  Sex: Male
  Weight: 80 kg

DRUGS (10)
  1. HYDROFLUX [FUROSEMIDE] [Concomitant]
     Indication: CARDIAC FAILURE CHRONIC
     Route: 065
  2. NOVORAPID [Concomitant]
     Active Substance: INSULIN ASPART
     Indication: TYPE 2 DIABETES MELLITUS
     Route: 065
  3. PRADAXA [Suspect]
     Active Substance: DABIGATRAN ETEXILATE MESYLATE
     Indication: CEREBROVASCULAR ACCIDENT PROPHYLAXIS
     Route: 065
  4. PRADAXA [Suspect]
     Active Substance: DABIGATRAN ETEXILATE MESYLATE
     Indication: ATRIAL FIBRILLATION
  5. APROVEL [Concomitant]
     Active Substance: IRBESARTAN
     Indication: HYPERTENSION
     Route: 065
  6. EPLERIUM [Concomitant]
     Indication: CARDIAC FAILURE CHRONIC
     Route: 065
  7. CARVEPEN [Concomitant]
     Active Substance: CARVEDILOL
     Indication: HYPERTENSION
     Route: 065
  8. CELMANTIN [Concomitant]
     Indication: DYSLIPIDAEMIA
     Route: 065
  9. LEVEMIR [Concomitant]
     Active Substance: INSULIN DETEMIR
     Indication: TYPE 2 DIABETES MELLITUS
     Route: 065
  10. ZYLAPOUR [Concomitant]
     Active Substance: ALLOPURINOL
     Indication: BLOOD URIC ACID INCREASED
     Route: 065

REACTIONS (10)
  - Epistaxis [Recovering/Resolving]
  - Haemodynamic instability [Recovering/Resolving]
  - Metabolic acidosis [Recovering/Resolving]
  - Ecchymosis [Recovering/Resolving]
  - Haematuria [Recovering/Resolving]
  - Acute kidney injury [Recovering/Resolving]
  - Skin haemorrhage [Recovering/Resolving]
  - Haematemesis [Recovering/Resolving]
  - Fall [Recovered/Resolved]
  - Procedural haemorrhage [Recovering/Resolving]

NARRATIVE: CASE EVENT DATE: 20210211
